FAERS Safety Report 5840466-3 (Version None)
Quarter: 2008Q3

REPORT INFORMATION
  Report Type: 
  Country: None (occurrence: None)
  Receive Date: 20080807
  Receipt Date: 20080725
  Transmission Date: 20090109
  Serious: Yes (Hospitalization)
  Sender: FDA-Public Use
  Company Number: 237052J08USA

PATIENT
  Age: 67 Year
  Sex: Female

DRUGS (5)
  1. REBIF [Suspect]
     Indication: MULTIPLE SCLEROSIS
     Dosage: 44 MCG, 3 IN 1 WEEKS, SUBCUTANEOUS
     Route: 058
     Dates: start: 20070125
  2. LEVAQUIN [Concomitant]
  3. TRIMPEX [Concomitant]
  4. AMOXICILLIN [Concomitant]
  5. IMODIUM [Concomitant]

REACTIONS (4)
  - ASTHENIA [None]
  - MUSCULAR WEAKNESS [None]
  - PYREXIA [None]
  - WALKING AID USER [None]
